FAERS Safety Report 8989182 (Version 1)
Quarter: 2012Q4

REPORT INFORMATION
  Report Type: Spontaneous
  Country: GB (occurrence: None)
  Receive Date: 20121219
  Receipt Date: 20121219
  Transmission Date: 20130627
  Serious: Yes (Other)
  Sender: FDA-Public Use
  Company Number: AUR-APL-2012-05303

PATIENT
  Age: 41 Year
  Sex: Female
  Weight: 62 kg

DRUGS (1)
  1. CITALOPRAM (CITALOPRAM) [Suspect]
     Indication: POSTNATAL DEPRESSION (EXCL PSYCHOSIS)
     Route: 048
     Dates: end: 200709

REACTIONS (8)
  - Confusional state [None]
  - Disturbance in attention [None]
  - Amnesia [None]
  - Feeling abnormal [None]
  - Motion sickness [None]
  - Palpitations [None]
  - Tremor [None]
  - Withdrawal syndrome [None]
